FAERS Safety Report 8387227-1 (Version None)
Quarter: 2012Q2

REPORT INFORMATION
  Report Type: 
  Country: None (occurrence: None)
  Receive Date: 20120525
  Receipt Date: 20120515
  Transmission Date: 20120825
  Serious: Yes (Other)
  Sender: FDA-Public Use
  Company Number: JP-ROCHE-1058629

PATIENT
  Sex: Female

DRUGS (4)
  1. CEFAZOLIN SODIUM [Concomitant]
     Indication: PROPHYLAXIS AGAINST DIARRHOEA
     Route: 048
     Dates: start: 20120329, end: 20120331
  2. MEIACT [Concomitant]
     Indication: INFECTION PROPHYLAXIS
     Route: 048
     Dates: start: 20120329, end: 20120331
  3. TAMIFLU [Suspect]
     Route: 048
     Dates: start: 20120331, end: 20120331
  4. TAMIFLU [Suspect]
     Indication: INFLUENZA
     Route: 048
     Dates: start: 20120329, end: 20120330

REACTIONS (4)
  - ALTERED STATE OF CONSCIOUSNESS [None]
  - SYNCOPE [None]
  - DIZZINESS [None]
  - FALL [None]
